FAERS Safety Report 5165782-2 (Version None)
Quarter: 2006Q4

REPORT INFORMATION
  Report Type: 
  Country: None (occurrence: None)
  Receive Date: 20061128
  Receipt Date: 20061116
  Transmission Date: 20070319
  Serious: Yes (Other)
  Sender: FDA-Public Use
  Company Number: DE-2006-035741

PATIENT
  Age: 24 Year
  Sex: Female
  Weight: 62 kg

DRUGS (1)
  1. MIRENA [Suspect]
     Indication: CONTRACEPTION
     Dates: start: 20001101, end: 20051101

REACTIONS (5)
  - ECHINOCOCCIASIS [None]
  - FOCAL NODULAR HYPERPLASIA [None]
  - HEPATIC ADENOMA [None]
  - HEPATIC CIRRHOSIS [None]
  - SEROLOGY ABNORMAL [None]
